FAERS Safety Report 16598206 (Version 1)
Quarter: 2020Q3

REPORT INFORMATION
  Report Type: Spontaneous
  Country: DE (occurrence: DE)
  Receive Date: 20190719
  Receipt Date: 20190719
  Transmission Date: 20201105
  Serious: Yes (Hospitalization)
  Sender: FDA-Public Use
  Company Number: IND-DE-009507513-1907DEU004274

PATIENT
  Age: 74 Year
  Sex: Female

DRUGS (6)
  1. AMLODIPINE [Concomitant]
     Active Substance: AMLODIPINE BESYLATE
     Dosage: 5 MILLIGRAM, BID (1?0?1?0)
  2. DIPYRONE [Concomitant]
     Active Substance: DIPYRONE
     Dosage: 500 MILLIGRAM, NEED
  3. ETORICOXIB. [Suspect]
     Active Substance: ETORICOXIB
     Indication: ARTHRALGIA
     Dosage: 90 MILLIGRAM, NK
  4. NIFEDIPINE. [Concomitant]
     Active Substance: NIFEDIPINE
     Dosage: 20 MG, 5 DROPS AS NEEDED, DROPS
  5. RAMIPRIL. [Concomitant]
     Active Substance: RAMIPRIL
     Dosage: 5 MG, 2?0?0?0
  6. ALLOPURINOL. [Concomitant]
     Active Substance: ALLOPURINOL
     Dosage: 100 MILLIGRAM, QD (1?0?0?0)

REACTIONS (3)
  - Product prescribing error [Unknown]
  - Hypertension [Unknown]
  - Headache [Unknown]
